FAERS Safety Report 5787572-X (Version None)
Quarter: 2008Q2

REPORT INFORMATION
  Report Type: 
  Country: None (occurrence: None)
  Receive Date: 20080625
  Receipt Date: 20071010
  Transmission Date: 20081010
  Serious: No
  Sender: FDA-Public Use
  Company Number: US-ASTRAZENECA-2007UW23528

PATIENT
  Age: 61 Year
  Sex: Female
  Weight: 64.4 kg

DRUGS (9)
  1. PULMICORT-100 [Suspect]
     Indication: ASTHMA
     Route: 055
     Dates: start: 20071009
  2. PULMICORT-100 [Suspect]
     Indication: LUNG DISORDER
     Route: 055
     Dates: start: 20071009
  3. ZETIA [Concomitant]
  4. OMEGA 3 [Concomitant]
  5. SINGULAIR [Concomitant]
  6. CALCIUM [Concomitant]
  7. FORADIL [Concomitant]
  8. AROMASIN [Concomitant]
  9. COZAAR [Concomitant]

REACTIONS (3)
  - INSOMNIA [None]
  - PSYCHOMOTOR HYPERACTIVITY [None]
  - THROAT IRRITATION [None]
